FAERS Safety Report 24133664 (Version 1)
Quarter: 2024Q3

REPORT INFORMATION
  Report Type: Spontaneous
  Country: US (occurrence: US)
  Receive Date: 20240724
  Receipt Date: 20240724
  Transmission Date: 20241017
  Serious: Yes (Life-Threatening, Hospitalization)
  Sender: JOHNSON AND JOHNSON
  Company Number: US-JNJFOC-20240755855

PATIENT
  Age: 44 Year
  Sex: Male

DRUGS (1)
  1. ACETAMINOPHEN [Suspect]
     Active Substance: ACETAMINOPHEN
     Indication: Product used for unknown indication
     Dosage: PATIENT TOOK 40 TABLETS OF APAP OVER THE PAST 1-2 DAYS
     Route: 065

REACTIONS (4)
  - Acute hepatic failure [Recovering/Resolving]
  - Intracranial pressure increased [Recovered/Resolved]
  - Oliguria [Unknown]
  - Overdose [Unknown]
